FAERS Safety Report 20221208 (Version 2)
Quarter: 2022Q1

REPORT INFORMATION
  Report Type: Spontaneous
  Country: FR (occurrence: FR)
  Receive Date: 20211223
  Receipt Date: 20220128
  Transmission Date: 20220423
  Serious: Yes (Other)
  Sender: FDA-Public Use
  Company Number: None

PATIENT
  Age: 91 Year
  Sex: Male

DRUGS (5)
  1. MIANSERIN HYDROCHLORIDE [Suspect]
     Active Substance: MIANSERIN HYDROCHLORIDE
     Indication: Product used for unknown indication
     Dosage: 10 MILLIGRAM DAILY; 10MG / D, MIANSERINE HYDROCHLORIDE
     Route: 048
     Dates: end: 20211118
  2. ACETAMINOPHEN [Suspect]
     Active Substance: ACETAMINOPHEN
     Indication: Pain
     Dosage: 3 GRAM DAILY; 1G EVERY 8H
     Route: 048
     Dates: start: 20211112, end: 20211118
  3. ROSUVASTATIN [Suspect]
     Active Substance: ROSUVASTATIN
     Indication: Hypercholesterolaemia
     Dosage: 5 MILLIGRAM DAILY; 5 MG / DAY
     Route: 048
     Dates: end: 20211118
  4. VALPROMIDE [Suspect]
     Active Substance: VALPROMIDE
     Indication: Behaviour disorder
     Dosage: 600 MILLIGRAM DAILY; 300 MG X2 / DAY, DEPAMIDE 300 MG, GASTRO-RESISTANT FILM-COATED TABLETS
     Route: 048
     Dates: end: 20211118
  5. QUETIAPINE FUMARATE [Suspect]
     Active Substance: QUETIAPINE FUMARATE
     Indication: Behaviour disorder
     Dosage: 50 MILLIGRAM DAILY; 50 MG / DAY, XEROQUEL LP 50 MG PROLONGED-RELEASE TABLET
     Route: 048
     Dates: start: 20211102

REACTIONS (2)
  - Hepatic cytolysis [Recovered/Resolved]
  - Cholestasis [Recovering/Resolving]

NARRATIVE: CASE EVENT DATE: 20211110
